FAERS Safety Report 8257107 (Version 2)
Quarter: 2014Q1

REPORT INFORMATION
  Report Type: Spontaneous
  Country: US (occurrence: US)
  Receive Date: 20111121
  Receipt Date: 20140106
  Transmission Date: 20141002
  Serious: Yes (Death, Hospitalization, Other)
  Sender: FDA-Public Use
  Company Number: PHHY2011US101008

PATIENT
  Age: 40 Year
  Sex: Male

DRUGS (4)
  1. TOPIRAMATE [Suspect]
  2. DIVALPROEX SODIUM [Concomitant]
  3. ROSIGLITAZONE [Concomitant]
  4. METFORMIN [Concomitant]

REACTIONS (12)
  - Hyperthermia [Fatal]
  - Cardiac arrest [Fatal]
  - Unresponsive to stimuli [Unknown]
  - Supraventricular tachycardia [Unknown]
  - Ventricular extrasystoles [Unknown]
  - Bundle branch block right [Unknown]
  - Electrocardiogram T wave abnormal [Unknown]
  - Blood pressure decreased [Unknown]
  - Heart rate decreased [Unknown]
  - Respiratory rate increased [Unknown]
  - Dry skin [Unknown]
  - PO2 decreased [Unknown]
